FAERS Safety Report 5052819-4 (Version None)
Quarter: 2006Q3

REPORT INFORMATION
  Report Type: 
  Country: None (occurrence: None)
  Receive Date: 20060717
  Receipt Date: 20060706
  Transmission Date: 20061208
  Serious: Yes (Other)
  Sender: FDA-Public Use
  Company Number: 2006AP03146

PATIENT
  Age: 76 Year
  Sex: Male
  Weight: 80 kg

DRUGS (12)
  1. PROPOFOL [Suspect]
     Route: 042
     Dates: start: 20050826, end: 20050826
  2. GLYCERYL TRINITRATE [Suspect]
     Route: 042
  3. MIDAZOLAM HYDROCHLORIDE [Suspect]
     Dates: start: 20050826, end: 20050826
  4. FENTANYL TRANSDERMAL SYSTEM [Suspect]
     Dates: start: 20050826, end: 20050826
  5. PANCURONIUM BROMIDE [Suspect]
     Dates: start: 20050826, end: 20050826
  6. VANCOMYCIN HYDROCHLORIDE [Suspect]
     Dates: start: 20050826, end: 20050826
  7. SERETIDE ACCUHALER [Concomitant]
  8. ASPIRIN [Concomitant]
  9. GLYCERYL TRINITRATE [Concomitant]
  10. SIMVASTATIN [Concomitant]
  11. METOPROLOL TARTRATE [Concomitant]
  12. ENOXAPARIN SODIUM [Concomitant]

REACTIONS (2)
  - HYPOTENSION [None]
  - URTICARIA [None]
